FAERS Safety Report 24176850 (Version 1)
Quarter: 2024Q3

REPORT INFORMATION
  Report Type: Spontaneous
  Country: CN (occurrence: CN)
  Receive Date: 20240806
  Receipt Date: 20240806
  Transmission Date: 20241017
  Serious: Yes (Other)
  Sender: SANDOZ
  Company Number: CN-002147023-NVSC2024CN057469

PATIENT

DRUGS (7)
  1. ATORVASTATIN [Suspect]
     Active Substance: ATORVASTATIN
     Indication: Heart failure with reduced ejection fraction
     Dosage: UNK (12.5-50MG, 2 TIMES/D)
     Route: 065
  2. ASPIRIN [Suspect]
     Active Substance: ASPIRIN
     Indication: Heart failure with reduced ejection fraction
     Dosage: 100 MG, QD
     Route: 065
  3. DIGOXIN [Suspect]
     Active Substance: DIGOXIN
     Indication: Heart failure with reduced ejection fraction
     Dosage: 0.125 MG, QD
     Route: 065
  4. ISOSORBIDE MONONITRATE [Suspect]
     Active Substance: ISOSORBIDE MONONITRATE
     Indication: Heart failure with reduced ejection fraction
     Dosage: 40 MG, QD
     Route: 065
  5. METOPROLOL SUCCINATE [Suspect]
     Active Substance: METOPROLOL SUCCINATE
     Indication: Heart failure with reduced ejection fraction
     Dosage: UNK (11.875-47.5MG,1 TIME/D)
     Route: 065
  6. SACUBITRIL\VALSARTAN [Suspect]
     Active Substance: SACUBITRIL\VALSARTAN
     Indication: Heart failure with reduced ejection fraction
     Dosage: UNK (12.5-50MG, 2 TIMES/D)
     Route: 065
  7. SPIRONOLACTONE [Suspect]
     Active Substance: SPIRONOLACTONE
     Indication: Heart failure with reduced ejection fraction
     Dosage: 20 MG, QD
     Route: 065

REACTIONS (2)
  - Heart failure with reduced ejection fraction [Unknown]
  - Condition aggravated [Unknown]
